FAERS Safety Report 6005908-1 (Version None)
Quarter: 2008Q4

REPORT INFORMATION
  Report Type: 
  Country: None (occurrence: None)
  Receive Date: 20081215
  Receipt Date: 20081204
  Transmission Date: 20090506
  Serious: Yes (Death, Hospitalization, Other)
  Sender: FDA-Public Use
  Company Number: 54947

PATIENT
  Age: 45 Year
  Sex: Male

DRUGS (2)
  1. METHOTREXATE INJ. [Suspect]
     Indication: ACUTE LYMPHOCYTIC LEUKAEMIA
  2. CYTARABINE [Suspect]

REACTIONS (6)
  - AREFLEXIA [None]
  - HYPOTONIA [None]
  - PARAPARESIS [None]
  - PNEUMONIA [None]
  - POLYNEUROPATHY [None]
  - RADICULOPATHY [None]
